FAERS Safety Report 7244941-9 (Version None)
Quarter: 2011Q1

REPORT INFORMATION
  Report Type: 
  Country: None (occurrence: None)
  Receive Date: 20110126
  Receipt Date: 20110124
  Transmission Date: 20110831
  Serious: Yes (Life-Threatening)
  Sender: FDA-Public Use
  Company Number: CN-ELI_LILLY_AND_COMPANY-CN201101005556

PATIENT
  Sex: Male

DRUGS (4)
  1. BYETTA [Suspect]
     Dosage: 10 UG, 2/D
     Route: 058
     Dates: start: 20110104, end: 20110122
  2. BYETTA [Suspect]
     Dosage: 10 UG, 2/D
     Route: 058
     Dates: start: 20110101
  3. BYETTA [Suspect]
     Indication: TYPE 2 DIABETES MELLITUS
     Dosage: UNK, UNKNOWN
     Route: 065
  4. INSULIN HUMAN INJECTION, ISOPHANE [Concomitant]
     Indication: TYPE 2 DIABETES MELLITUS
     Dosage: UNK UG, UNKNOWN
     Route: 058
     Dates: start: 20110104, end: 20110122

REACTIONS (3)
  - DYSPNOEA [None]
  - PRURITUS [None]
  - OFF LABEL USE [None]
